FAERS Safety Report 21146119 (Version 1)
Quarter: 2022Q3

REPORT INFORMATION
  Report Type: Spontaneous
  Country: IT (occurrence: IT)
  Receive Date: 20220729
  Receipt Date: 20220729
  Transmission Date: 20221027
  Serious: Yes (Hospitalization, Other)
  Sender: FDA-Public Use
  Company Number: None

PATIENT
  Age: 79 Year
  Sex: Female
  Weight: 62 kg

DRUGS (5)
  1. SOTALOLO [Concomitant]
     Indication: Product used for unknown indication
     Dosage: UNA COMPRESSA DA 80 MG TRE VOLTE AL GIORNO
     Route: 048
  2. ZOFENOPRIL [Concomitant]
     Active Substance: ZOFENOPRIL
     Indication: Product used for unknown indication
     Dosage: UNA COMPRESSA DA 30 MG AL GIORNO
     Route: 048
  3. METFORMIN [Suspect]
     Active Substance: METFORMIN HYDROCHLORIDE
     Indication: Diabetes mellitus
     Dosage: 500 MG/DIE 1 COMPRESSA AI PASTI
     Route: 048
  4. LUVION [Concomitant]
     Indication: Product used for unknown indication
     Dosage: UNA COMPRESSA DA 50 MG UNA VOLTA AL GIORNO
     Route: 048
  5. AMLODIPINE [Concomitant]
     Active Substance: AMLODIPINE BESYLATE
     Indication: Product used for unknown indication
     Dosage: UNA COMPRESSA DA 10 MG AL GIORNO
     Route: 048

REACTIONS (3)
  - Hyperlactacidaemia [Recovering/Resolving]
  - Hyperkalaemia [Recovering/Resolving]
  - Acidosis [Recovering/Resolving]

NARRATIVE: CASE EVENT DATE: 20220627
